FAERS Safety Report 12606203 (Version 1)
Quarter: 2016Q3

REPORT INFORMATION
  Report Type: Spontaneous
  Country: US (occurrence: US)
  Receive Date: 20160729
  Receipt Date: 20160729
  Transmission Date: 20161109
  Serious: No
  Sender: FDA-Public Use
  Company Number: US-BAYER-2016-133755

PATIENT
  Age: 42 Year
  Sex: Male

DRUGS (9)
  1. FLUTICASONE [Concomitant]
     Active Substance: FLUTICASONE\FLUTICASONE PROPIONATE
     Dosage: 50 UNK, UNK
     Route: 045
  2. DOFETILIDE. [Concomitant]
     Active Substance: DOFETILIDE
     Dosage: 1 DF, BID
  3. WARFARIN [Concomitant]
     Active Substance: WARFARIN
     Dosage: 5 MG, TAKE 10 MG TUES, THURS AND SAT AND 5 MG ALL OTHER DAYS.
  4. AMOXICILLIN. [Concomitant]
     Active Substance: AMOXICILLIN
     Dosage: TAKE 1 TAB (875 MG TOTAL) BY MOUTH TWICE DAILY.
  5. SERTRALINE [Concomitant]
     Active Substance: SERTRALINE HYDROCHLORIDE
     Indication: ANXIETY
     Dosage: 1 DF, QD
     Dates: start: 20160422
  6. HYDROXYZINE HCL [Concomitant]
     Active Substance: HYDROXYZINE HYDROCHLORIDE
     Dosage: TAKE 25 MG BY MOUTH EVERY 8 HOURS AS NEEDED.
  7. LORAZEPAM. [Concomitant]
     Active Substance: LORAZEPAM
     Dosage: TAKE 1 MG BY MOUTH TWICE DAILY AS NEEDED
  8. CLARITIN [Suspect]
     Active Substance: LORATADINE
     Dosage: UNK
  9. METOPROLOL SUCCINATE. [Concomitant]
     Active Substance: METOPROLOL SUCCINATE
     Dosage: TAKE 3 TABS (75 MG TOTAL) BY MOUTH DAILY. DO NOT CRUSH
     Route: 048

REACTIONS (1)
  - Drug hypersensitivity [None]
